FAERS Safety Report 25761770 (Version 1)
Quarter: 2025Q3

REPORT INFORMATION
  Report Type: Report from Study
  Country: CA (occurrence: CA)
  Receive Date: 20250904
  Receipt Date: 20250904
  Transmission Date: 20251020
  Serious: Yes (Hospitalization, Other)
  Sender: NORDIC PHARMA
  Company Number: CA-NORDICGR-063845

PATIENT
  Age: 44 Year
  Sex: Female
  Weight: 78 kg

DRUGS (8)
  1. METHOTREXATE [Suspect]
     Active Substance: METHOTREXATE
     Indication: Product used for unknown indication
     Route: 065
  2. ESTRACE [Concomitant]
     Active Substance: ESTRADIOL
     Indication: Product used for unknown indication
  3. AUBAGIO [Concomitant]
     Active Substance: TERIFLUNOMIDE
     Indication: Product used for unknown indication
  4. CELEBREX [Concomitant]
     Active Substance: CELECOXIB
     Indication: Product used for unknown indication
  5. ACTEMRA [Concomitant]
     Active Substance: TOCILIZUMAB
     Indication: Rheumatoid arthritis
     Route: 042
  6. HYDROXYCHLOROQUINE SULFATE [Concomitant]
     Active Substance: HYDROXYCHLOROQUINE SULFATE
     Indication: Product used for unknown indication
     Route: 065
  7. PROGESTERONE [Concomitant]
     Active Substance: PROGESTERONE
     Indication: Product used for unknown indication
  8. COPAXONE [Concomitant]
     Active Substance: GLATIRAMER ACETATE
     Indication: Product used for unknown indication

REACTIONS (45)
  - Ophthalmic herpes zoster [Not Recovered/Not Resolved]
  - Rhinorrhoea [Not Recovered/Not Resolved]
  - Acne [Not Recovered/Not Resolved]
  - Myelitis [Not Recovered/Not Resolved]
  - Nasopharyngitis [Not Recovered/Not Resolved]
  - Pain in extremity [Not Recovered/Not Resolved]
  - Pyrexia [Not Recovered/Not Resolved]
  - Skin ulcer [Not Recovered/Not Resolved]
  - Herpes zoster [Not Recovered/Not Resolved]
  - Heart rate increased [Not Recovered/Not Resolved]
  - Tendonitis [Not Recovered/Not Resolved]
  - Arthritis [Not Recovered/Not Resolved]
  - Dysphonia [Not Recovered/Not Resolved]
  - Blood pressure increased [Not Recovered/Not Resolved]
  - Arthralgia [Not Recovered/Not Resolved]
  - Sinusitis [Not Recovered/Not Resolved]
  - Abdominal pain [Not Recovered/Not Resolved]
  - Multiple sclerosis [Not Recovered/Not Resolved]
  - Blood pressure systolic increased [Not Recovered/Not Resolved]
  - Bursitis [Not Recovered/Not Resolved]
  - Nasal congestion [Not Recovered/Not Resolved]
  - Inflammation [Not Recovered/Not Resolved]
  - Oropharyngeal pain [Not Recovered/Not Resolved]
  - Blood pressure diastolic decreased [Not Recovered/Not Resolved]
  - Diarrhoea [Unknown]
  - Hypoaesthesia [Not Recovered/Not Resolved]
  - Urinary tract infection [Unknown]
  - Musculoskeletal disorder [Not Recovered/Not Resolved]
  - Weight decreased [Not Recovered/Not Resolved]
  - Weight increased [Not Recovered/Not Resolved]
  - Sinusitis [Not Recovered/Not Resolved]
  - Gastroenteritis [Not Recovered/Not Resolved]
  - Erythema [Not Recovered/Not Resolved]
  - Cough [Not Recovered/Not Resolved]
  - Burning sensation [Not Recovered/Not Resolved]
  - Body temperature decreased [Not Recovered/Not Resolved]
  - Influenza like illness [Not Recovered/Not Resolved]
  - Drug tolerance [Not Recovered/Not Resolved]
  - Blood pressure fluctuation [Not Recovered/Not Resolved]
  - Oxygen saturation decreased [Not Recovered/Not Resolved]
  - Blood pressure diastolic increased [Not Recovered/Not Resolved]
  - Arthropathy [Not Recovered/Not Resolved]
  - Loss of consciousness [Not Recovered/Not Resolved]
  - Bronchitis [Not Recovered/Not Resolved]
  - Blood pressure systolic abnormal [Not Recovered/Not Resolved]
